FAERS Safety Report 5335367-3 (Version None)
Quarter: 2007Q2

REPORT INFORMATION
  Report Type: 
  Country: None (occurrence: None)
  Receive Date: 20070525
  Receipt Date: 20070514
  Transmission Date: 20071010
  Serious: Yes (Other)
  Sender: FDA-Public Use
  Company Number: US-PFIZER INC-2007039717

PATIENT

DRUGS (3)
  1. LYRICA [Suspect]
     Indication: CONVULSION
  2. GEODON [Suspect]
  3. ZONEGRAN [Concomitant]
     Indication: CONVULSION

REACTIONS (2)
  - OEDEMA [None]
  - WEIGHT INCREASED [None]
